FAERS Safety Report 4280044-3 (Version None)
Quarter: 2004Q1

REPORT INFORMATION
  Report Type: 
  Country: None (occurrence: None)
  Receive Date: 20040126
  Receipt Date: 20040115
  Transmission Date: 20041129
  Serious: Yes (Hospitalization)
  Sender: FDA-Public Use
  Company Number: 2004002685

PATIENT
  Age: 51 Year
  Sex: Male

DRUGS (4)
  1. ZYRTEC [Suspect]
     Indication: PRURITUS
     Dosage: ORAL
     Route: 048
     Dates: start: 20021115
  2. TERBUTALINE SULFATE [Suspect]
     Indication: ILL-DEFINED DISORDER
     Dosage: ORAL
     Route: 048
     Dates: start: 20021105
  3. INTERFERON ALFA-2B (INTERFERON ALFA-2B) [Suspect]
     Indication: HEPATITIS C
     Dosage: SUBCUTANEOUS
     Route: 058
     Dates: start: 20021105, end: 20030422
  4. RIBAVIRIN [Suspect]
     Indication: HEPATITIS C
     Dosage: (DAILY), ORAL
     Route: 048
     Dates: start: 20021105, end: 20030422

REACTIONS (3)
  - DERMATITIS BULLOUS [None]
  - PEMPHIGUS [None]
  - PRURITUS [None]
